FAERS Safety Report 25637980 (Version 1)
Quarter: 2025Q3

REPORT INFORMATION
  Report Type: Spontaneous
  Country: CN (occurrence: CN)
  Receive Date: 20250804
  Receipt Date: 20250804
  Transmission Date: 20251021
  Serious: Yes (Life-Threatening)
  Sender: PFIZER
  Company Number: CN-PFIZER INC-PV202500092747

PATIENT
  Age: 61 Year
  Sex: Male
  Weight: 42 kg

DRUGS (1)
  1. VORICONAZOLE [Suspect]
     Active Substance: VORICONAZOLE
     Indication: Pneumonia fungal
     Dosage: 200 MG, 2X/DAY
     Route: 041
     Dates: start: 20250721, end: 20250722

REACTIONS (4)
  - Drug hypersensitivity [Unknown]
  - Oxygen saturation decreased [Unknown]
  - Cold sweat [Recovered/Resolved]
  - Erythema [Recovered/Resolved]

NARRATIVE: CASE EVENT DATE: 20250721
